FAERS Safety Report 21131937 (Version 1)
Quarter: 2022Q3

REPORT INFORMATION
  Report Type: Spontaneous
  Country: US (occurrence: US)
  Receive Date: 20220726
  Receipt Date: 20220726
  Transmission Date: 20221027
  Serious: Yes (Other)
  Sender: FDA-Public Use
  Company Number: US-BAXTER-2022BAX015399

PATIENT
  Age: 75 Year
  Sex: Male

DRUGS (4)
  1. MILRINONE [Suspect]
     Active Substance: MILRINONE
     Route: 065
  2. EPOPROSTENOL [Suspect]
     Active Substance: EPOPROSTENOL
  3. DOBUTAMINE [Concomitant]
     Active Substance: DOBUTAMINE HYDROCHLORIDE
     Route: 065
  4. OXYGEN [Concomitant]
     Active Substance: OXYGEN
     Dosage: MIXED VENOUS OXYGEN 37.9%
     Route: 065

REACTIONS (3)
  - Hypoxia [Unknown]
  - Right-to-left cardiac shunt [Unknown]
  - Condition aggravated [Unknown]
